FAERS Safety Report 8767066 (Version 2)
Quarter: 2012Q4

REPORT INFORMATION
  Report Type: 
  Country: JP (occurrence: JP)
  Receive Date: 20120830
  Receipt Date: 20120912
  Transmission Date: 20130627
  Serious: Yes (Other)
  Sender: FDA-Public Use
  Company Number: JP-PFIZER INC-2012208088

PATIENT
  Age: 78 Year
  Sex: Male

DRUGS (3)
  1. VFEND [Suspect]
     Indication: PROPHYLAXIS
     Dosage: 300 mg, 1x/day
     Route: 048
  2. VFEND [Interacting]
     Dosage: 200 mg, 1x/day
     Route: 048
  3. TRAMADOL [Interacting]
     Dosage: 25 mg, 2x/day

REACTIONS (2)
  - Drug interaction [Recovered/Resolved]
  - Delirium [Recovered/Resolved]
